FAERS Safety Report 4725377-9 (Version None)
Quarter: 2005Q3

REPORT INFORMATION
  Report Type: 
  Country: None (occurrence: None)
  Receive Date: 20050721
  Receipt Date: 20050606
  Transmission Date: 20060218
  Serious: No
  Sender: FDA-Public Use
  Company Number: 2005SP001239

PATIENT
  Age: 79 Year
  Sex: Male
  Weight: 87.0906 kg

DRUGS (2)
  1. LUNESTA [Suspect]
     Dosage: 2.5 MG;HS;ORAL;  3 MG;HS;ORAL
     Route: 048
     Dates: start: 20050601, end: 20050601
  2. LUNESTA [Suspect]
     Dosage: 2.5 MG;HS;ORAL;  3 MG;HS;ORAL
     Route: 048
     Dates: start: 20050601

REACTIONS (2)
  - DRUG INEFFECTIVE [None]
  - INITIAL INSOMNIA [None]
